FAERS Safety Report 5421944-8 (Version None)
Quarter: 2007Q3

REPORT INFORMATION
  Report Type: 
  Country: None (occurrence: None)
  Receive Date: 20070822
  Receipt Date: 20070809
  Transmission Date: 20080115
  Serious: Yes (Hospitalization)
  Sender: FDA-Public Use
  Company Number: CA-BAYER-200713640GDS

PATIENT
  Age: 14 Year
  Sex: Female
  Weight: 19 kg

DRUGS (7)
  1. AVELOX [Suspect]
     Indication: TONSILLITIS
     Dosage: TOTAL DAILY DOSE: 80 MG
     Route: 048
     Dates: start: 20061104, end: 20061109
  2. TACROLIMUS [Interacting]
     Indication: RENAL TRANSPLANT
     Dosage: TOTAL DAILY DOSE: 5 MG
     Route: 048
     Dates: start: 20001101
  3. AMLODIPINE [Concomitant]
     Indication: DRUG USE FOR UNKNOWN INDICATION
     Route: 048
  4. CLOBAZAM [Concomitant]
     Indication: DRUG USE FOR UNKNOWN INDICATION
     Route: 048
  5. MYCOPHENOLATE MOFETIL [Concomitant]
     Indication: DRUG USE FOR UNKNOWN INDICATION
     Route: 048
  6. PREDNISONE TAB [Concomitant]
     Indication: DRUG USE FOR UNKNOWN INDICATION
     Route: 048
  7. RANITIDINE [Concomitant]
     Indication: DRUG USE FOR UNKNOWN INDICATION
     Route: 048

REACTIONS (2)
  - DRUG LEVEL INCREASED [None]
  - DYSAESTHESIA [None]
